FAERS Safety Report 6872716-9 (Version None)
Quarter: 2010Q3

REPORT INFORMATION
  Report Type: 
  Country: None (occurrence: None)
  Receive Date: 20100723
  Receipt Date: 20081028
  Transmission Date: 20110219
  Serious: No
  Sender: FDA-Public Use
  Company Number: US-PFIZER INC-2008091698

PATIENT
  Sex: Female
  Weight: 57.3 kg

DRUGS (2)
  1. CHANTIX [Suspect]
     Dates: start: 20081025
  2. MULTI-VITAMINS [Concomitant]

REACTIONS (2)
  - INSOMNIA [None]
  - RESTLESSNESS [None]
